FAERS Safety Report 4655603-6 (Version None)
Quarter: 2005Q2

REPORT INFORMATION
  Report Type: 
  Country: None (occurrence: None)
  Receive Date: 20050505
  Receipt Date: 20050426
  Transmission Date: 20051028
  Serious: Yes (Other)
  Sender: FDA-Public Use
  Company Number: HQWYE375127APR05

PATIENT

DRUGS (1)
  1. ADVIL [Suspect]
     Indication: OSTEOARTHRITIS
     Dosage: 800 MG 3X PER 1 DAY, ORAL
     Route: 048
     Dates: start: 20030101, end: 20030101

REACTIONS (1)
  - DEEP VEIN THROMBOSIS [None]
